FAERS Safety Report 7335486-6 (Version None)
Quarter: 2011Q1

REPORT INFORMATION
  Report Type: 
  Country: None (occurrence: None)
  Receive Date: 20110307
  Receipt Date: 20110225
  Transmission Date: 20110831
  Serious: Yes (Death, Hospitalization)
  Sender: FDA-Public Use
  Company Number: JP-MILLENNIUM PHARMACEUTICALS, INC.-2010-02388

PATIENT

DRUGS (6)
  1. VELCADE [Suspect]
     Dosage: 2.6 MG, UNK
     Route: 042
     Dates: start: 20081013
  2. VELCADE [Suspect]
     Dosage: 2.1 MG, UNK
     Route: 042
     Dates: start: 20100125, end: 20100408
  3. METHYCOBAL                         /00324901/ [Concomitant]
     Indication: NEUROPATHY PERIPHERAL
     Dosage: 1500 UG, UNK
     Route: 048
     Dates: start: 20050609, end: 20100412
  4. RISUMIC [Concomitant]
     Indication: HYPOTENSION
     Dosage: 20 MG, UNK
     Route: 048
     Dates: start: 20100405, end: 20100419
  5. ZOVIRAX                            /00587301/ [Concomitant]
     Indication: INFECTION PROPHYLAXIS
     Dosage: 200 MG, UNK
     Route: 048
     Dates: start: 20081017, end: 20100412
  6. VELCADE [Suspect]
     Indication: MULTIPLE MYELOMA
     Dosage: 2.1 MG, UNK
     Route: 042
     Dates: start: 20081017, end: 20090928

REACTIONS (6)
  - DECREASED APPETITE [None]
  - OVERDOSE [None]
  - VENOOCCLUSIVE LIVER DISEASE [None]
  - DIARRHOEA [None]
  - HYPOTENSION [None]
  - MULTI-ORGAN FAILURE [None]
